FAERS Safety Report 24307520 (Version 1)
Quarter: 2024Q3

REPORT INFORMATION
  Report Type: Spontaneous
  Country: US (occurrence: US)
  Receive Date: 20240911
  Receipt Date: 20240911
  Transmission Date: 20241016
  Serious: No
  Sender: REGENERON
  Company Number: US-REGENERON PHARMACEUTICALS, INC.-2024-086969

PATIENT
  Sex: Female

DRUGS (4)
  1. EYLEA HD [Suspect]
     Active Substance: AFLIBERCEPT
     Indication: Neovascular age-related macular degeneration
     Dosage: 8 MG, FIRST DOSE, FORMULATION: HD VIAL
     Dates: start: 20231117, end: 20231117
  2. EYLEA HD [Suspect]
     Active Substance: AFLIBERCEPT
     Dosage: 8 MG, SIX WEEKS, SECOND DOSE, FORMULATION: HD VIAL
     Dates: start: 202312, end: 202312
  3. EYLEA HD [Suspect]
     Active Substance: AFLIBERCEPT
     Dosage: 8 MG, SEVEN WEEKS, THIRD DOSE, FORMULATION: HD VIAL
     Dates: start: 202402, end: 202402
  4. EYLEA HD [Suspect]
     Active Substance: AFLIBERCEPT
     Dosage: 8 MG; FOURTH DOSE, FORMULATION: HD VIAL
     Dates: start: 20240426

REACTIONS (2)
  - Eye pain [Unknown]
  - Product dose omission issue [Recovered/Resolved]

NARRATIVE: CASE EVENT DATE: 20240419
